FAERS Safety Report 5402700-3 (Version None)
Quarter: 2007Q3

REPORT INFORMATION
  Report Type: 
  Country: None (occurrence: None)
  Receive Date: 20070801
  Receipt Date: 20070726
  Transmission Date: 20080115
  Serious: Yes (Other)
  Sender: FDA-Public Use
  Company Number: B0480671A

PATIENT
  Age: 43 Year
  Sex: Male
  Weight: 78.1 kg

DRUGS (7)
  1. FOSAMPRENAVIR [Suspect]
     Indication: HIV INFECTION
     Dosage: 1400MG PER DAY
     Route: 048
     Dates: start: 20070621, end: 20070629
  2. RITONAVIR [Suspect]
     Indication: HIV INFECTION
     Dosage: 100MG PER DAY
     Route: 048
     Dates: start: 20070621, end: 20070629
  3. ABACAVIR SULFATE + LAMIVUDINE [Suspect]
     Indication: HIV INFECTION
     Route: 048
     Dates: start: 20070621, end: 20070628
  4. TRIAMCINOLONE [Suspect]
     Dosage: 10MG SINGLE DOSE
     Route: 048
     Dates: start: 20070629
  5. PREDNISON [Suspect]
     Dosage: 50MG TWICE PER DAY
     Route: 048
     Dates: start: 20070702
  6. TAVEGIL [Suspect]
     Route: 048
     Dates: start: 20070602
  7. NITRAZEPAM [Concomitant]
     Dosage: 5MG SINGLE DOSE
     Route: 048
     Dates: start: 20070704

REACTIONS (6)
  - ECZEMA [None]
  - FATIGUE [None]
  - HYPERSENSITIVITY [None]
  - PRURITUS [None]
  - PYREXIA [None]
  - RASH [None]
